FAERS Safety Report 8477941-1 (Version None)
Quarter: 2012Q2

REPORT INFORMATION
  Report Type: 
  Country: None (occurrence: None)
  Receive Date: 20120629
  Receipt Date: 20120625
  Transmission Date: 20120825
  Serious: Yes (Other)
  Sender: FDA-Public Use
  Company Number: US-PFIZER INC-2012123108

PATIENT
  Sex: Female
  Weight: 36.3 kg

DRUGS (8)
  1. ZOLOFT [Suspect]
     Indication: MAJOR DEPRESSION
     Dosage: 100 MG, 2X/DAY
     Route: 048
  2. ZOLOFT [Suspect]
     Indication: PANIC ATTACK
  3. SECTRAL [Concomitant]
     Indication: MITRAL VALVE PROLAPSE
     Dosage: UNK, DAILY
  4. VISTARIL [Suspect]
     Dosage: UNK
  5. KLONOPIN [Concomitant]
     Dosage: 0.5 MG, HS
  6. ZOLOFT [Suspect]
     Indication: ANXIETY
     Dosage: 100 MG Q AM
     Dates: start: 20060306
  7. TRAZODONE [Concomitant]
     Dosage: 100 MG, QHS
     Route: 048
  8. ENALAPRIL [Concomitant]
     Indication: HYPERTENSION
     Dosage: 10 MG, DAILY

REACTIONS (1)
  - NEOPLASM MALIGNANT [None]
